FAERS Safety Report 4319951-1 (Version None)
Quarter: 2004Q1

REPORT INFORMATION
  Report Type: 
  Country: None (occurrence: None)
  Receive Date: 20040317
  Receipt Date: 20040308
  Transmission Date: 20041129
  Serious: Yes (Other)
  Sender: FDA-Public Use
  Company Number: S04-USA-01210-01

PATIENT
  Age: 16 Year
  Sex: Female

DRUGS (3)
  1. LEXAPRO [Suspect]
     Indication: OPPOSITIONAL DEFIANT DISORDER
     Dosage: 10 MG QD PO
     Route: 048
     Dates: start: 20040227, end: 20040307
  2. LEXAPRO [Suspect]
     Indication: OPPOSITIONAL DEFIANT DISORDER
     Dosage: 60 MG ONCE PO
     Route: 048
     Dates: start: 20040308, end: 20040308
  3. LEXAPRO [Suspect]
     Indication: OPPOSITIONAL DEFIANT DISORDER
     Dosage: 5 MG QD PO
     Route: 048
     Dates: start: 20040209, end: 20040226

REACTIONS (4)
  - ATTENTION-SEEKING BEHAVIOUR [None]
  - EMOTIONAL DISTRESS [None]
  - FAMILY STRESS [None]
  - INTENTIONAL OVERDOSE [None]
